FAERS Safety Report 5742769-X (Version None)
Quarter: 2008Q2

REPORT INFORMATION
  Report Type: 
  Country: None (occurrence: None)
  Receive Date: 20080519
  Receipt Date: 20080509
  Transmission Date: 20081010
  Serious: Yes (Hospitalization)
  Sender: FDA-Public Use
  Company Number: US-MERCK-0705USA02860

PATIENT
  Age: 62 Year
  Sex: Female

DRUGS (1)
  1. FOSAMAX [Suspect]
     Indication: OSTEOPOROSIS
     Route: 048
     Dates: start: 20060201, end: 20060501

REACTIONS (5)
  - ANXIETY [None]
  - DENTAL CARIES [None]
  - DEPRESSION [None]
  - HAEMOPTYSIS [None]
  - TOOTH LOSS [None]
